FAERS Safety Report 14014618 (Version 3)
Quarter: 2018Q4

REPORT INFORMATION
  Report Type: Spontaneous
  Country: JP (occurrence: JP)
  Receive Date: 20170927
  Receipt Date: 20181020
  Transmission Date: 20190204
  Serious: Yes (Death, Hospitalization)
  Sender: FDA-Public Use
  Company Number: JP-ABBVIE-17K-087-2114071-00

PATIENT
  Age: 86 Year
  Sex: Female

DRUGS (19)
  1. HUMIRA [Suspect]
     Active Substance: ADALIMUMAB
     Dosage: 3RD ADMINISTRATION
     Route: 058
     Dates: start: 20100824, end: 20100824
  2. SOLU-MEDROL [Suspect]
     Active Substance: METHYLPREDNISOLONE SODIUM SUCCINATE
     Indication: PRODUCT USED FOR UNKNOWN INDICATION
     Route: 065
  3. SULFAMETHOXAZOLE AND TRIMETHOPRIM [Concomitant]
     Active Substance: SULFAMETHOXAZOLE\TRIMETHOPRIM
     Route: 048
     Dates: start: 20101005, end: 20101019
  4. MICONAZOLE. [Concomitant]
     Active Substance: MICONAZOLE
     Indication: PULMONARY MYCOSIS
     Route: 042
     Dates: start: 20100929, end: 20100929
  5. MICONAZOLE. [Concomitant]
     Active Substance: MICONAZOLE
     Route: 042
     Dates: start: 20100930, end: 20100930
  6. CEFTRIAXONE SODIUM HYDRATE [Concomitant]
     Active Substance: CEFTRIAXONE SODIUM
     Indication: PNEUMONIA
     Route: 042
     Dates: start: 20101018, end: 20101018
  7. HUMIRA [Suspect]
     Active Substance: ADALIMUMAB
     Dosage: 4TH ADMINISTRATION
     Route: 058
     Dates: start: 20100910, end: 20100910
  8. ENDOXAN [Suspect]
     Active Substance: CYCLOPHOSPHAMIDE
     Indication: PNEUMOCYSTIS JIROVECII PNEUMONIA
     Route: 065
  9. METHOTREXATE. [Concomitant]
     Active Substance: METHOTREXATE
     Indication: RHEUMATOID ARTHRITIS
     Dosage: UNIT DOSE: 1 TO 2 TABLETS
     Route: 048
     Dates: start: 20100724, end: 20101001
  10. CEFTRIAXONE SODIUM HYDRATE [Concomitant]
     Active Substance: CEFTRIAXONE SODIUM
     Route: 042
     Dates: start: 20101019, end: 20101019
  11. HUMAN NORMAL IMMUNOGLOBULIN [Concomitant]
     Active Substance: HUMAN IMMUNOGLOBULIN G
     Indication: PNEUMONIA
     Route: 042
     Dates: start: 20101018, end: 20101018
  12. FLUCONAZOLE. [Concomitant]
     Active Substance: FLUCONAZOLE
     Route: 048
     Dates: start: 20101017, end: 20101019
  13. ISEPAMICIN SULFATE [Concomitant]
     Indication: PNEUMONIA
     Route: 030
     Dates: start: 20101016, end: 20101018
  14. HUMIRA [Suspect]
     Active Substance: ADALIMUMAB
     Dosage: 2ND ADMINISTRATION
     Route: 058
     Dates: start: 20100810, end: 20100810
  15. ISONIAZID. [Concomitant]
     Active Substance: ISONIAZID
     Indication: ANTIBIOTIC PROPHYLAXIS
     Route: 048
     Dates: start: 20100724, end: 20101007
  16. HUMIRA [Suspect]
     Active Substance: ADALIMUMAB
     Indication: PRODUCT USED FOR UNKNOWN INDICATION
     Dosage: 1ST ADMINISTRATION
     Route: 058
     Dates: start: 20100724, end: 20100724
  17. FLUCONAZOLE. [Concomitant]
     Active Substance: FLUCONAZOLE
     Indication: PULMONARY MYCOSIS
     Route: 048
     Dates: start: 20101005, end: 20101016
  18. ETODOLAC. [Concomitant]
     Active Substance: ETODOLAC
     Indication: RHEUMATOID ARTHRITIS
     Route: 048
     Dates: start: 20100724, end: 20101007
  19. SULFAMETHOXAZOLE AND TRIMETHOPRIM [Concomitant]
     Active Substance: SULFAMETHOXAZOLE\TRIMETHOPRIM
     Indication: PNEUMONIA
     Dosage: DAILY DOSE: 6 TO 9 TABLETS?UNIT DOSE: 2 TO 3 TABLETS
     Route: 048
     Dates: start: 20100925, end: 20101004

REACTIONS (2)
  - Pneumocystis jirovecii pneumonia [Unknown]
  - Interstitial lung disease [Fatal]

NARRATIVE: CASE EVENT DATE: 20100924
